FAERS Safety Report 8370484-5 (Version None)
Quarter: 2012Q2

REPORT INFORMATION
  Report Type: 
  Country: None (occurrence: None)
  Receive Date: 20120518
  Receipt Date: 20120515
  Transmission Date: 20120825
  Serious: Yes (Death, Other)
  Sender: FDA-Public Use
  Company Number: PHHY2011NZ86740

PATIENT
  Sex: Male

DRUGS (2)
  1. CLOZARIL [Suspect]
     Indication: SCHIZOPHRENIA
     Dosage: 300 MG, DAILY
     Route: 048
     Dates: start: 20090528
  2. AMISULPRIDE [Concomitant]
     Dosage: 300 MG, DAILY
     Route: 048

REACTIONS (6)
  - WHITE BLOOD CELL COUNT INCREASED [None]
  - FALL [None]
  - LUNG INFECTION [None]
  - PLATELET COUNT INCREASED [None]
  - NEUTROPHIL COUNT INCREASED [None]
  - RESPIRATORY TRACT INFECTION [None]
